FAERS Safety Report 9179395 (Version 1)
Quarter: 2012Q4

REPORT INFORMATION
  Report Type: 
  Country: US (occurrence: US)
  Receive Date: 20121029
  Receipt Date: 20121029
  Transmission Date: 20130627
  Serious: No
  Sender: FDA-Public Use
  Company Number: US-MYLANLABS-2012S1006730

PATIENT
  Sex: Female

DRUGS (2)
  1. ETOPOSIDE [Suspect]
     Indication: OVARIAN CANCER
     Dosage: Take 1 capsule daily and take 2 capsules every other day
     Route: 048
     Dates: start: 20120320
  2. ETOPOSIDE [Suspect]
     Indication: OVARIAN CANCER
     Dosage: Take 1 capsule daily and take 2 capsules every other day
     Route: 048
     Dates: start: 20120320

REACTIONS (1)
  - Abdominal pain upper [Recovering/Resolving]
